FAERS Safety Report 26205753 (Version 1)
Quarter: 2025Q4

REPORT INFORMATION
  Report Type: Spontaneous
  Country: EU (occurrence: EU)
  Receive Date: 20251229
  Receipt Date: 20251229
  Transmission Date: 20260118
  Serious: Yes (Death, Other)
  Sender: GALDERMA
  Company Number: None

PATIENT

DRUGS (1)
  1. ORACEA [Suspect]
     Active Substance: DOXYCYCLINE
     Indication: Rosacea
     Dosage: 1 DOSAGE FORM, QD
     Route: 048
     Dates: start: 202510, end: 20251130

REACTIONS (3)
  - Completed suicide [Fatal]
  - Anxiety [Unknown]
  - Persecutory delusion [Unknown]

NARRATIVE: CASE EVENT DATE: 20250101
